FAERS Safety Report 19009310 (Version 1)
Quarter: 2021Q1

REPORT INFORMATION
  Report Type: Spontaneous
  Country: DE (occurrence: DE)
  Receive Date: 20210315
  Receipt Date: 20210315
  Transmission Date: 20210420
  Serious: Yes (Other)
  Sender: FDA-Public Use
  Company Number: DE-TEVA-2021-DE-1888117

PATIENT
  Sex: Female

DRUGS (2)
  1. OLANZAPIN [Suspect]
     Active Substance: OLANZAPINE
     Indication: PSYCHOTIC DISORDER
     Dosage: THREAT START BEFORE 2011 , UNIT DOSE : 17.5 MG , SUSPENDED MEDICATION DURING 1ST PREGNANCY (BIRTH 20
     Route: 048
  2. PAROXETIN [Suspect]
     Active Substance: PAROXETINE HYDROCHLORIDE
     Indication: PSYCHOTIC DISORDER
     Dosage: THREAT START BEFORE 2011 , UNIT DOSE : 20 MG ,SUSPENDED MEDICATION DURING 1ST PREGNANCY (BIRTH 2011)
     Route: 048

REACTIONS (2)
  - Exposure during pregnancy [Unknown]
  - Stillbirth [Unknown]

NARRATIVE: CASE EVENT DATE: 20190808
